FAERS Safety Report 8269674-1 (Version None)
Quarter: 2012Q2

REPORT INFORMATION
  Report Type: 
  Country: None (occurrence: None)
  Receive Date: 20120405
  Receipt Date: 20120321
  Transmission Date: 20120825
  Serious: Yes (Other)
  Sender: FDA-Public Use
  Company Number: JPI-P-020511

PATIENT
  Age: 27 Year
  Sex: Male
  Weight: 90.7194 kg

DRUGS (2)
  1. XYREM [Suspect]
     Indication: SOMNOLENCE
     Dosage: (UNKNOWN), ORAL 9 GM (4.5 GM, 2 IN 1 D), ORAL
     Route: 048
     Dates: start: 20070725
  2. XYREM [Suspect]
     Indication: NARCOLEPSY
     Dosage: (UNKNOWN), ORAL 9 GM (4.5 GM, 2 IN 1 D), ORAL
     Route: 048
     Dates: start: 20070725

REACTIONS (11)
  - HIP SURGERY [None]
  - INSOMNIA [None]
  - KNEE OPERATION [None]
  - SHOULDER OPERATION [None]
  - HALLUCINATION [None]
  - JAW OPERATION [None]
  - WEIGHT INCREASED [None]
  - SOMNOLENCE [None]
  - ROAD TRAFFIC ACCIDENT [None]
  - LOW DENSITY LIPOPROTEIN INCREASED [None]
  - HIGH DENSITY LIPOPROTEIN DECREASED [None]
